FAERS Safety Report 19569185 (Version 3)
Quarter: 2022Q3

REPORT INFORMATION
  Report Type: Report from Study
  Country: US (occurrence: US)
  Receive Date: 20210714
  Receipt Date: 20220714
  Transmission Date: 20221026
  Serious: No
  Sender: FDA-Public Use
  Company Number: US-SA-SAC20210712000441

PATIENT
  Age: 61 Year
  Sex: Female

DRUGS (3)
  1. DUPILUMAB [Suspect]
     Active Substance: DUPILUMAB
     Indication: Dermatitis atopic
     Dosage: LOADING DOSE WAS SPLIT WITH ONE INJECTION GIVEN ON 05JUL2021 AND THE OTHER ON ON 08JUL2021
     Route: 058
     Dates: start: 20210705
  2. DUPILUMAB [Suspect]
     Active Substance: DUPILUMAB
     Dosage: 300 MG, QOW
     Route: 058
  3. DUPILUMAB [Suspect]
     Active Substance: DUPILUMAB
     Indication: Dermatitis atopic
     Dosage: 300 MG,OTHER
     Route: 058
     Dates: start: 202106

REACTIONS (16)
  - Injection site pain [Unknown]
  - Visual impairment [Unknown]
  - Condition aggravated [Unknown]
  - Confusional state [Unknown]
  - Injection site pain [Unknown]
  - Vision blurred [Not Recovered/Not Resolved]
  - Ocular hyperaemia [Not Recovered/Not Resolved]
  - Conjunctivitis [Unknown]
  - Eye pruritus [Unknown]
  - Dry eye [Unknown]
  - Incorrect dose administered [Unknown]
  - Inappropriate schedule of product administration [Unknown]
  - Eye inflammation [Recovered/Resolved]
  - Throat irritation [Unknown]
  - Dysphagia [Unknown]
  - Eye irritation [Recovered/Resolved]

NARRATIVE: CASE EVENT DATE: 20210630
